FAERS Safety Report 5145829-X (Version None)
Quarter: 2006Q4

REPORT INFORMATION
  Report Type: 
  Country: None (occurrence: None)
  Receive Date: 20061108
  Receipt Date: 20061030
  Transmission Date: 20070319
  Serious: Yes (Other)
  Sender: FDA-Public Use
  Company Number: US-JNJFOC-20061100299

PATIENT
  Sex: Male
  Weight: 38.56 kg

DRUGS (2)
  1. CONCERTA [Suspect]
     Indication: ATTENTION DEFICIT/HYPERACTIVITY DISORDER
     Route: 048
  2. DEPAKOTE [Concomitant]

REACTIONS (2)
  - BODY HEIGHT BELOW NORMAL [None]
  - UNDERWEIGHT [None]
